FAERS Safety Report 7006056-4 (Version None)
Quarter: 2010Q3

REPORT INFORMATION
  Report Type: 
  Country: None (occurrence: None)
  Receive Date: 20100921
  Receipt Date: 20100907
  Transmission Date: 20110219
  Serious: Yes (Other)
  Sender: FDA-Public Use
  Company Number: IT-MYLANLABS-2010S1016388

PATIENT
  Age: 21 Year
  Sex: Female

DRUGS (5)
  1. MERCAPTOPURINE [Suspect]
     Indication: CROHN'S DISEASE
     Route: 048
     Dates: start: 20070901
  2. TUMOR NECROSIS FACTOR ALPHA (TNF-ALPHA) INHIB [Suspect]
     Indication: CROHN'S DISEASE
     Dates: start: 20081201
  3. PREDNISONE [Concomitant]
     Indication: CROHN'S DISEASE
     Route: 048
  4. MESALAZINE [Concomitant]
     Indication: CROHN'S DISEASE
     Route: 048
     Dates: start: 20070701
  5. ENTOCORT EC [Concomitant]
     Indication: CROHN'S DISEASE
     Dates: start: 20070701

REACTIONS (1)
  - ACUTE MYELOID LEUKAEMIA [None]
